FAERS Safety Report 6576019-1 (Version None)
Quarter: 2010Q1

REPORT INFORMATION
  Report Type: 
  Country: None (occurrence: None)
  Receive Date: 20100209
  Receipt Date: 20100127
  Transmission Date: 20100710
  Serious: Yes (Other)
  Sender: FDA-Public Use
  Company Number: PHEH2007US12631

PATIENT
  Sex: Female
  Weight: 88.435 kg

DRUGS (59)
  1. AREDIA [Suspect]
     Indication: MULTIPLE MYELOMA
     Dosage: 90MG MONTHLY
  2. ZOMETA [Suspect]
     Indication: MULTIPLE MYELOMA
     Dosage: 4MG MONTHLY
     Route: 042
     Dates: end: 20050601
  3. THALIDOMIDE [Concomitant]
     Dosage: 100 MG, UNK
     Dates: start: 20060119, end: 20071001
  4. HYDROCODONE [Concomitant]
  5. MS CONTIN [Concomitant]
  6. DECADRON [Concomitant]
     Dosage: 40 MG, UNK
     Dates: start: 20060119
  7. CATAPRES-TTS-1 [Concomitant]
     Dosage: 2 PATCH WEEKLY
     Route: 062
     Dates: start: 19951108
  8. CHEMOTHERAPEUTICS NOS [Concomitant]
  9. CALCIUM [Concomitant]
  10. HYDRALAZINE [Concomitant]
  11. PAROXETINE HCL [Concomitant]
  12. POTASSIUM CHLORIDE [Concomitant]
  13. RANITIDINE [Concomitant]
  14. SULAR [Concomitant]
  15. CHLORHEXIDINE GLUCONATE [Concomitant]
     Dosage: UNK
  16. DOCUSATE [Concomitant]
     Dosage: 100 MG
  17. SENNOSIDE [Concomitant]
     Dosage: 8.6 MG
  18. ASPIRIN [Concomitant]
     Dosage: 325 MG
  19. MILK OF MAGNESIA TAB [Concomitant]
     Dosage: UNK
  20. GABAPENTIN [Concomitant]
     Dosage: UNK
  21. ACYCLOVIR [Concomitant]
     Dosage: 800 MG
  22. MORPHINE SULFATE [Concomitant]
     Dosage: UNK
  23. DEXAMETHASONE [Concomitant]
     Dosage: 4 MG
  24. HEMORRHOIDAL [Concomitant]
     Dosage: UNK
  25. LORATADINE [Concomitant]
     Dosage: 10 MG
  26. CLOTRIMAZOLE [Concomitant]
     Dosage: UNK
     Route: 061
  27. PROMETHAZINE HCL [Concomitant]
     Dosage: 25 MG
  28. CIPROFLOXACIN HYDROCHLORIDE [Concomitant]
     Dosage: 500 MG
  29. PENICILLIN VK [Concomitant]
     Dosage: 250 MG
  30. METRONIDAZOLE [Concomitant]
     Dosage: 250 MG
  31. PETROLATUM [Concomitant]
     Dosage: UNK
     Route: 061
  32. UNASYN [Concomitant]
     Dosage: UNK
  33. ISOPHANE INSULIN [Concomitant]
     Dosage: UNK
  34. CLONIDINE [Concomitant]
     Dosage: UNK
  35. HEPARIN-INJEKT [Concomitant]
     Dosage: UNK
  36. NIFEDIPINE [Concomitant]
     Dosage: UNK
  37. NORMAL SALINE [Concomitant]
     Dosage: 1000 ML
  38. PERCOCET [Concomitant]
     Dosage: UNK
  39. LEVAQUIN [Concomitant]
     Dosage: 250 MG / DIALY
  40. MACROBID [Concomitant]
     Dosage: 100 MG
  41. NITROFURAN [Concomitant]
     Dosage: 100 MG
  42. K-DUR [Concomitant]
     Dosage: UNK
  43. PAXIL [Concomitant]
     Dosage: UNK
  44. AMPICILLIN [Concomitant]
     Dosage: 500 MG / BID
     Route: 048
     Dates: start: 20050907
  45. DIFLUCAN [Concomitant]
     Dosage: SINGEL DOSE
     Dates: start: 20050907
  46. OXYBUTYNIN [Concomitant]
     Dosage: 4 MG / BID
     Route: 048
  47. PREMARIN [Concomitant]
     Dosage: UNK
  48. GLIPIZIDE [Concomitant]
     Dosage: UNK
  49. ZANTAC [Concomitant]
     Dosage: UNK
  50. SIMVASTATIN [Concomitant]
  51. NYSTATIN [Concomitant]
  52. MECLIZINE HCL [Concomitant]
  53. TRIAMCINOLONE [Concomitant]
  54. TRAZODONE HYDROCHLORIDE [Concomitant]
  55. FLUCONAZOLE [Concomitant]
  56. ACETAMINOPHEN W/ CODEINE [Concomitant]
  57. NISOLDIPINE [Concomitant]
  58. MELPHALAN HYDROCHLORIDE [Concomitant]
  59. PREDNISONE [Concomitant]

REACTIONS (78)
  - ANAEMIA [None]
  - ANHEDONIA [None]
  - ANXIETY [None]
  - AORTIC ARTERIOSCLEROSIS [None]
  - AORTIC VALVE INCOMPETENCE [None]
  - ASTHENIA [None]
  - BACK PAIN [None]
  - BIOPSY GINGIVAL [None]
  - BLADDER CANCER [None]
  - BLADDER OPERATION [None]
  - BONE DISORDER [None]
  - BONE PAIN [None]
  - CATARACT [None]
  - CHEST PAIN [None]
  - CHILLS [None]
  - CHRONIC SINUSITIS [None]
  - COLON OPERATION [None]
  - DEBRIDEMENT [None]
  - DEFORMITY [None]
  - DEPRESSION [None]
  - DIVERTICULUM [None]
  - DYSPNOEA [None]
  - EMOTIONAL DISTRESS [None]
  - ENTEROVESICAL FISTULA [None]
  - ERYTHEMA [None]
  - ESCHERICHIA INFECTION [None]
  - EXOSTOSIS [None]
  - GAIT DISTURBANCE [None]
  - GASTROOESOPHAGEAL REFLUX DISEASE [None]
  - GINGIVAL BLEEDING [None]
  - GINGIVAL DISORDER [None]
  - GINGIVAL OEDEMA [None]
  - GINGIVITIS [None]
  - GLAUCOMA [None]
  - HAEMATURIA [None]
  - HYPERLIPIDAEMIA [None]
  - HYPOKALAEMIA [None]
  - HYPOPHAGIA [None]
  - INTERVERTEBRAL DISC DEGENERATION [None]
  - JAW OPERATION [None]
  - LIFE EXPECTANCY SHORTENED [None]
  - LYMPHADENOPATHY [None]
  - MASS [None]
  - MAXILLOFACIAL OPERATION [None]
  - MITRAL VALVE INCOMPETENCE [None]
  - MOUTH ULCERATION [None]
  - MULTIPLE MYELOMA [None]
  - NIGHT SWEATS [None]
  - OBESITY [None]
  - OEDEMA PERIPHERAL [None]
  - OROPHARYNGEAL PAIN [None]
  - ORTHOPNOEA [None]
  - OSTEOARTHRITIS [None]
  - OSTEONECROSIS [None]
  - OSTEOPENIA [None]
  - PAIN [None]
  - PAIN IN JAW [None]
  - PLASMACYTOSIS [None]
  - PRESBYOPIA [None]
  - PURULENCE [None]
  - PYREXIA [None]
  - SCOLIOSIS [None]
  - SINUS DISORDER [None]
  - SKIN CANDIDA [None]
  - SKIN ODOUR ABNORMAL [None]
  - SLEEP APNOEA SYNDROME [None]
  - SLEEP DISORDER [None]
  - SPINAL OSTEOARTHRITIS [None]
  - SPONDYLOLISTHESIS [None]
  - SURGERY [None]
  - TOOTH DISORDER [None]
  - TOOTH EXTRACTION [None]
  - TOOTHACHE [None]
  - URINARY TRACT INFECTION [None]
  - VAGINAL INFECTION [None]
  - VERTIGO [None]
  - WALKING AID USER [None]
  - WOUND DRAINAGE [None]
